FAERS Safety Report 25402753 (Version 2)
Quarter: 2025Q3

REPORT INFORMATION
  Report Type: Report from Study
  Country: CA (occurrence: CA)
  Receive Date: 20250605
  Receipt Date: 20250803
  Transmission Date: 20251021
  Serious: Yes (Hospitalization)
  Sender: ALEXION PHARMACEUTICALS
  Company Number: CA-AstraZeneca-CH-00883768A

PATIENT
  Age: 68 Year
  Sex: Female

DRUGS (5)
  1. TEZEPELUMAB [Suspect]
     Active Substance: TEZEPELUMAB
     Indication: Asthma
  2. TEZEPELUMAB [Suspect]
     Active Substance: TEZEPELUMAB
  3. COMBIVENT [Concomitant]
     Active Substance: ALBUTEROL SULFATE\IPRATROPIUM BROMIDE
     Route: 065
  4. SPIRIVA RESPIMAT [Concomitant]
     Active Substance: TIOTROPIUM BROMIDE
     Dosage: 2.5MCG 2INH OD
     Route: 065
     Dates: start: 2017
  5. ADVAIR HFA [Concomitant]
     Active Substance: FLUTICASONE PROPIONATE\SALMETEROL XINAFOATE
     Dosage: 500MCG 2INH OD
     Route: 065
     Dates: start: 2017

REACTIONS (1)
  - Osteoarthritis [Unknown]
